FAERS Safety Report 9385951 (Version 1)
Quarter: 2013Q3

REPORT INFORMATION
  Report Type: Report from Study
  Country: US (occurrence: US)
  Receive Date: 20130705
  Receipt Date: 20130705
  Transmission Date: 20140515
  Serious: Yes (Other)
  Sender: FDA-Public Use
  Company Number: US-ABBOTT-13P-163-1112685-00

PATIENT
  Age: 61 Year
  Sex: Female

DRUGS (13)
  1. HUMIRA [Suspect]
     Indication: RHEUMATOID ARTHRITIS
     Dates: end: 201211
  2. L-THYROXINE [Concomitant]
     Indication: HYPOTHYROIDISM
  3. MOEXIPRIL/HCTZ [Concomitant]
     Indication: HYPERTENSION
     Dosage: 15/12.5MG, DAILY
     Route: 048
  4. PREVACID [Concomitant]
     Indication: GASTROOESOPHAGEAL REFLUX DISEASE
     Route: 048
  5. NIFEDIPINE [Concomitant]
     Indication: RAYNAUD^S PHENOMENON
     Route: 048
  6. BENZONATATE [Concomitant]
     Indication: ASTHMA
     Route: 048
  7. ADVAIR [Concomitant]
     Indication: ASTHMA
  8. COMBIVENT [Concomitant]
     Indication: PRODUCT USED FOR UNKNOWN INDICATION
     Dosage: RESCUE INHALER
  9. MILK OF MAGNESIA [Concomitant]
     Indication: IRRITABLE BOWEL SYNDROME
     Dosage: DAILY
  10. MIRALAX [Concomitant]
     Indication: IRRITABLE BOWEL SYNDROME
     Dosage: DAILY
  11. DULCOLAX [Concomitant]
     Indication: IRRITABLE BOWEL SYNDROME
     Dosage: DAILY
  12. NAPROXEN [Concomitant]
     Indication: PAIN
  13. RESTASIS [Concomitant]
     Indication: DRY EYE
     Dosage: TWICE DAILY

REACTIONS (3)
  - Arthropathy [Recovered/Resolved]
  - Rotator cuff syndrome [Unknown]
  - Cataract [Recovered/Resolved]
